FAERS Safety Report 5704736-1 (Version None)
Quarter: 2008Q2

REPORT INFORMATION
  Report Type: 
  Country: None (occurrence: None)
  Receive Date: 20080414
  Receipt Date: 20080403
  Transmission Date: 20081010
  Serious: Yes (Death)
  Sender: FDA-Public Use
  Company Number: JP-JNJFOC-20080303465

PATIENT
  Sex: Male

DRUGS (26)
  1. TRAMADOL HCL [Suspect]
     Route: 048
  2. TRAMADOL HCL [Suspect]
     Route: 048
  3. TRAMADOL HCL [Suspect]
     Route: 048
  4. TRAMADOL HCL [Suspect]
     Route: 048
  5. TRAMADOL HCL [Suspect]
     Route: 048
  6. TRAMADOL HCL [Suspect]
     Route: 048
  7. TRAMADOL HCL [Suspect]
     Indication: CANCER PAIN
     Route: 048
  8. MS CONTIN [Suspect]
     Indication: CANCER PAIN
     Route: 065
  9. DUROTEP [Suspect]
     Route: 062
  10. DUROTEP [Suspect]
     Indication: CANCER PAIN
     Route: 062
  11. NOVAMIN [Concomitant]
     Route: 065
  12. LOXONIN [Concomitant]
     Route: 065
  13. SELEBEX [Concomitant]
     Route: 065
  14. BIOFERMIN [Concomitant]
     Route: 065
  15. PRIMPERAN INJ [Concomitant]
     Route: 065
  16. ITRIZOLE [Concomitant]
     Route: 065
  17. BUSCOPAN [Concomitant]
     Route: 050
  18. CLEAR BONE [Concomitant]
     Route: 065
  19. OMNIPAQUE 240 [Concomitant]
     Route: 065
  20. RINDERON 1 [Concomitant]
     Route: 050
  21. MYSLEE [Concomitant]
     Route: 065
  22. SOLDEM 3A [Concomitant]
     Route: 050
  23. FAMOTIDINE [Concomitant]
     Route: 050
  24. NOVAMIN [Concomitant]
     Route: 050
  25. PRIMPERAN INJ [Concomitant]
     Route: 050
  26. ROPION [Concomitant]
     Route: 050

REACTIONS (12)
  - BLOOD ALKALINE PHOSPHATASE INCREASED [None]
  - BLOOD LACTATE DEHYDROGENASE INCREASED [None]
  - CONTUSION [None]
  - DECREASED APPETITE [None]
  - HYPOAESTHESIA [None]
  - INSOMNIA [None]
  - MALAISE [None]
  - METASTASES TO BONE [None]
  - NAUSEA [None]
  - NEOPLASM MALIGNANT [None]
  - OESOPHAGEAL CANDIDIASIS [None]
  - VOMITING [None]
